FAERS Safety Report 7715098-2 (Version None)
Quarter: 2011Q3

REPORT INFORMATION
  Report Type: 
  Country: None (occurrence: None)
  Receive Date: 20110810
  Receipt Date: 20110427
  Transmission Date: 20111222
  Serious: No
  Sender: FDA-Public Use
  Company Number: 1000020573

PATIENT
  Age: 24 Year
  Sex: Female

DRUGS (13)
  1. SAVELLA [Suspect]
     Indication: PAIN
     Dosage: 100 MG (50 MG, 2 IN 1 D), ORAL
     Route: 048
     Dates: end: 20110423
  2. SEROQUEL (QUETIAPINE) (QUETIAPINE) [Concomitant]
  3. TRILEPTAL (OXCARBAZEPINE) (OXCARBAZEPINE) [Concomitant]
  4. ZOLOFT (SERTRALINE) (SERTRALINE) [Concomitant]
  5. RESTORIL (TEMAZEPAM) (TEMAZEPAM) [Concomitant]
  6. SAVELLA [Suspect]
     Indication: PAIN
     Dosage: 12.5 MG (12.5 MG, 1 IN 1 D), ORAL; 25 MG (12.5 MG, 2 IN 1 D), ORAL; 50 MG (25 MG, 2 IN 1 D), ORAL
     Route: 048
     Dates: start: 20101001, end: 20101001
  7. DILAUDID (HYDROMORPHONE HYDROCHLORIDE) (HYDROMORPHONE HYDROCHLORIDE) [Concomitant]
  8. ADVIL (IBUPROFEN) (IBUPROFEN) [Concomitant]
  9. PHENERGAN (PROMETHAZINE) (PROMETHAZINE) [Concomitant]
  10. PROTONIX [Concomitant]
  11. CARAFATE (SUCRALFATE) (SUCRALFATE) [Concomitant]
  12. MOBIC [Concomitant]
  13. ZYRTEC [Concomitant]

REACTIONS (10)
  - INSOMNIA [None]
  - CONFUSIONAL STATE [None]
  - MEMORY IMPAIRMENT [None]
  - IRRITABILITY [None]
  - INCREASED TENDENCY TO BRUISE [None]
  - TREMOR [None]
  - MYALGIA [None]
  - NAUSEA [None]
  - VISUAL IMPAIRMENT [None]
  - SKIN EXFOLIATION [None]
